FAERS Safety Report 8816877 (Version 2)
Quarter: 2012Q4

REPORT INFORMATION
  Report Type: Spontaneous
  Country: US (occurrence: None)
  Receive Date: 20121002
  Receipt Date: 20121011
  Transmission Date: 20130627
  Serious: Yes (Hospitalization)
  Sender: FDA-Public Use
  Company Number: AUR-APL-2012-03494

PATIENT
  Age: 55 Year
  Sex: Male

DRUGS (13)
  1. RAMIPRIL (RAMIPRIL) [Suspect]
     Indication: DRUG USE FOR UNKNOWN INDICATION
  2. METFORMIN (METFORMIN) [Suspect]
     Indication: TYPE 2 DIABETES MELLITUS
  3. GLIPIZIDE [Suspect]
     Indication: TYPE 2 DIABETES MELLITUS
     Dates: start: 20120719, end: 20120719
  4. SAXAGLIPTIN [Suspect]
     Indication: TYPE 2 DIABETES MELLITUS
     Dates: start: 20110426
  5. ACTOS (PIOGLITAZONE HYDROCHLORIDE) [Suspect]
     Indication: TYPE 2 DIABETES MELLITUS
  6. PLACEBO [Suspect]
     Indication: TYPE 2 DIABETES MELLITUS
     Dates: start: 20110426
  7. HUMULIN (INSULIN HUMAN) [Suspect]
     Indication: TYPE 2 DIABETES MELLITUS
     Dates: start: 20120719, end: 20120724
  8. ACETAMINOPHEN (PARACETAMOL),ACETYLSAL ACID,CAFFEINE CITRATE [Suspect]
     Indication: DRUG USE FOR UNKNOWN INDICATION
     Dates: start: 20120719, end: 20120719
  9. PERCOCET [Suspect]
     Indication: DRUG USE FOR UNKNOWN INDICATION
     Dates: start: 20120721, end: 20120722
  10. NORCO [Suspect]
     Indication: DRUG USE FOR UNKNOWN INDICATION
     Dates: start: 20120720, end: 20120721
  11. PIOGLITAZONE (PIOGLITAZONE) [Suspect]
     Indication: TYPE II DIABETES MELLITUS
  12. ACETYLSALICYLIC ACID (ACETYLSALICYLIC ACID) [Concomitant]
  13. TRAMADOL (TRAMADOL) [Concomitant]

REACTIONS (4)
  - Renal failure acute [None]
  - Dizziness [None]
  - Dehydration [None]
  - Confusion postoperative [None]
